FAERS Safety Report 23461707 (Version 1)
Quarter: 2024Q1

REPORT INFORMATION
  Report Type: Spontaneous
  Country: CA (occurrence: CA)
  Receive Date: 20240131
  Receipt Date: 20240131
  Transmission Date: 20240410
  Serious: Yes (Other)
  Sender: FDA-Public Use
  Company Number: CA-PFIZER INC-2021575994

PATIENT
  Age: 39 Year
  Sex: Male
  Weight: 49 kg

DRUGS (3)
  1. ZIRABEV [Suspect]
     Active Substance: BEVACIZUMAB-BVZR
     Indication: Neurofibromatosis
     Dosage: 5 MG/KG, 265 MG EVERY 2 WEEKS
     Route: 042
     Dates: start: 20210701
  2. ZIRABEV [Suspect]
     Active Substance: BEVACIZUMAB-BVZR
     Indication: Brain neoplasm malignant
     Dosage: 490 MG
     Route: 042
  3. ZIRABEV [Suspect]
     Active Substance: BEVACIZUMAB-BVZR
     Dosage: 490 MG, EVERY 3 WEEKS AND 7 VIALS ON FILE
     Route: 042

REACTIONS (2)
  - Weight fluctuation [Unknown]
  - Off label use [Unknown]

NARRATIVE: CASE EVENT DATE: 20210701
